FAERS Safety Report 5658756-6 (Version None)
Quarter: 2008Q1

REPORT INFORMATION
  Report Type: 
  Country: None (occurrence: None)
  Receive Date: 20080310
  Receipt Date: 20070726
  Transmission Date: 20080703
  Serious: No
  Sender: FDA-Public Use
  Company Number: US-BAYER-200711045BCC

PATIENT
  Age: 78 Year
  Sex: Female
  Weight: 66 kg

DRUGS (7)
  1. ALEVE [Suspect]
     Indication: PAIN
     Dosage: TOTAL DAILY DOSE: 220 MG  UNIT DOSE: 220 MG
     Route: 048
     Dates: start: 20070404
  2. ALEVE [Suspect]
     Dosage: TOTAL DAILY DOSE: 440 MG  UNIT DOSE: 220 MG
     Route: 048
     Dates: start: 20070405
  3. ATENOLOL [Concomitant]
  4. ALPRAZOLAM [Concomitant]
  5. MELATONIN [Concomitant]
  6. ASCORBIC ACID [Concomitant]
  7. VITAMIN B-12 [Concomitant]

REACTIONS (2)
  - ASTHENIA [None]
  - PARAESTHESIA [None]
